FAERS Safety Report 22255363 (Version 2)
Quarter: 2023Q2

REPORT INFORMATION
  Report Type: Spontaneous
  Country: ES (occurrence: ES)
  Receive Date: 20230426
  Receipt Date: 20230508
  Transmission Date: 20230722
  Serious: Yes (Hospitalization)
  Sender: FDA-Public Use
  Company Number: None

PATIENT
  Age: 94 Year
  Sex: Female

DRUGS (6)
  1. LORAZEPAM [Interacting]
     Active Substance: LORAZEPAM
     Indication: Anxiety
     Dosage: 2 MG, 1X/DAY; 1MG (0.5-0.5-0-1)
     Route: 048
     Dates: start: 20230323, end: 20230401
  2. PREGABALIN [Interacting]
     Active Substance: PREGABALIN
     Indication: Pain
     Dosage: 50 MG, 2X/DAY; FREQ:12 H;1-0-1
     Route: 048
     Dates: start: 20230323, end: 20230401
  3. NALOXONE HYDROCHLORIDE\OXYCODONE HYDROCHLORIDE [Interacting]
     Active Substance: NALOXONE HYDROCHLORIDE\OXYCODONE HYDROCHLORIDE
     Indication: Pain
     Dosage: 1 DF, 2X/DAY; FREQ:12 H;1-0-1
     Route: 048
     Dates: start: 20230323, end: 20230401
  4. TRAZODONE HYDROCHLORIDE [Concomitant]
     Active Substance: TRAZODONE HYDROCHLORIDE
     Indication: Depression
     Dosage: 50 MG, 1X/DAY; FREQ:24 H;0-0-0-0.5
     Route: 048
     Dates: start: 20220420
  5. BRINTELLIX [Concomitant]
     Active Substance: VORTIOXETINE HYDROBROMIDE
     Indication: Depression
     Dosage: 15 MG, 1X/DAY; FREQ:24 H;1-0-0
     Route: 048
     Dates: start: 20220901
  6. XARELTO [Concomitant]
     Active Substance: RIVAROXABAN
     Indication: Atrial fibrillation
     Dosage: 20 MG, 1X/DAY; FREQ:24 H;1-0-0
     Route: 048
     Dates: start: 20220119

REACTIONS (7)
  - Drug interaction [Unknown]
  - Vomiting [Recovered/Resolved]
  - Pneumonia aspiration [Recovered/Resolved]
  - Respiratory failure [Recovered/Resolved]
  - Depressed level of consciousness [Recovered/Resolved]
  - Syncope [Recovered/Resolved]
  - Fall [Recovered/Resolved]

NARRATIVE: CASE EVENT DATE: 20230401
